FAERS Safety Report 10512599 (Version 1)
Quarter: 2014Q4

REPORT INFORMATION
  Report Type: Spontaneous
  Country: US (occurrence: US)
  Receive Date: 20141011
  Receipt Date: 20141011
  Transmission Date: 20150528
  Serious: No
  Sender: FDA-Public Use
  Company Number: US-ASTRAZENECA-2014SE72920

PATIENT
  Age: 627 Month
  Sex: Male
  Weight: 99.8 kg

DRUGS (3)
  1. ADVOCARE DIET SUPPLEMENT [Concomitant]
     Indication: WEIGHT LOSS DIET
     Route: 048
  2. NEXIUM [Suspect]
     Active Substance: ESOMEPRAZOLE MAGNESIUM
     Indication: GASTROOESOPHAGEAL REFLUX DISEASE
     Route: 048
     Dates: start: 2009, end: 2012
  3. NEXIUM [Suspect]
     Active Substance: ESOMEPRAZOLE MAGNESIUM
     Indication: GASTROOESOPHAGEAL REFLUX DISEASE
     Route: 048
     Dates: start: 20140923, end: 20140926

REACTIONS (6)
  - Malaise [Unknown]
  - Expired product administered [Not Recovered/Not Resolved]
  - Abdominal pain upper [Unknown]
  - Constipation [Unknown]
  - Intentional product misuse [Not Recovered/Not Resolved]
  - Abdominal discomfort [Unknown]

NARRATIVE: CASE EVENT DATE: 201409
